FAERS Safety Report 18099156 (Version 1)
Quarter: 2020Q3

REPORT INFORMATION
  Report Type: Spontaneous
  Country: US (occurrence: US)
  Receive Date: 20200731
  Receipt Date: 20200731
  Transmission Date: 20201103
  Serious: No
  Sender: FDA-Public Use
  Company Number: US-PARATEK PHARMACEUTICALS, INC.-2020PTK00059

PATIENT
  Age: 52 Year
  Sex: Female

DRUGS (6)
  1. NUZYRA [Suspect]
     Active Substance: OMADACYCLINE
     Indication: INFECTION
     Dosage: 300 MG, 1X/DAY
     Route: 048
     Dates: start: 20200401
  2. ALBENDAZOLE. [Concomitant]
     Active Substance: ALBENDAZOLE
     Dosage: UNK
     Dates: end: 20200413
  3. RIFAMPIN. [Concomitant]
     Active Substance: RIFAMPIN
  4. DOXYCYCLINE. [Concomitant]
     Active Substance: DOXYCYCLINE
  5. ALBUTEROL INHALER [Concomitant]
     Active Substance: ALBUTEROL
  6. LEVOFLOXACIN. [Concomitant]
     Active Substance: LEVOFLOXACIN

REACTIONS (7)
  - Abdominal discomfort [Not Recovered/Not Resolved]
  - Product storage error [Unknown]
  - Night sweats [Not Recovered/Not Resolved]
  - Unevaluable event [Unknown]
  - Drug dose titration not performed [Not Recovered/Not Resolved]
  - Abdominal pain upper [Unknown]
  - Incorrect product administration duration [Not Recovered/Not Resolved]

NARRATIVE: CASE EVENT DATE: 2020
